FAERS Safety Report 20569863 (Version 1)
Quarter: 2022Q1

REPORT INFORMATION
  Report Type: Spontaneous
  Country: IT (occurrence: IT)
  Receive Date: 20220309
  Receipt Date: 20220309
  Transmission Date: 20220423
  Serious: Yes (Other)
  Sender: FDA-Public Use
  Company Number: IT-SA-2022SA075997

PATIENT
  Age: 44 Year
  Sex: Male

DRUGS (2)
  1. DUPILUMAB [Suspect]
     Active Substance: DUPILUMAB
     Indication: Dermatitis atopic
     Dosage: 600 MG LOADING DOSE (300 MG 2 INJECTIONS)
     Dates: start: 2018, end: 2018
  2. DUPILUMAB [Suspect]
     Active Substance: DUPILUMAB
     Dosage: 300 MG, QOW
     Dates: start: 2018, end: 2020

REACTIONS (4)
  - Seronegative arthritis [Unknown]
  - Spinal pain [Unknown]
  - Mobility decreased [Unknown]
  - Axial spondyloarthritis [Unknown]

NARRATIVE: CASE EVENT DATE: 20200101
